FAERS Safety Report 7355101-5 (Version None)
Quarter: 2011Q1

REPORT INFORMATION
  Report Type: 
  Country: None (occurrence: None)
  Receive Date: 20110316
  Receipt Date: 20110303
  Transmission Date: 20110831
  Serious: Yes (Hospitalization, Other)
  Sender: FDA-Public Use
  Company Number: FR-ELI_LILLY_AND_COMPANY-FR201103004384

PATIENT
  Sex: Female

DRUGS (4)
  1. ASPEGIC 325 [Concomitant]
  2. CHONDROSULF [Concomitant]
  3. OPTRUMA [Suspect]
     Indication: OSTEOPOROSIS
     Route: 048
  4. CALCIUM [Concomitant]

REACTIONS (2)
  - PULMONARY EMBOLISM [None]
  - PULMONARY INFARCTION [None]
